FAERS Safety Report 15680144 (Version 2)
Quarter: 2019Q1

REPORT INFORMATION
  Report Type: Spontaneous
  Country: JP (occurrence: JP)
  Receive Date: 20181203
  Receipt Date: 20190207
  Transmission Date: 20190417
  Serious: Yes (Hospitalization, Other)
  Sender: FDA-Public Use
  Company Number: JP-ROCHE-2224134

PATIENT
  Age: 7 Decade
  Sex: Female

DRUGS (5)
  1. OXALIPLATIN. [Concomitant]
     Active Substance: OXALIPLATIN
     Indication: RECTAL CANCER
     Dosage: DOSAGE IS UNCERTAIN.
     Route: 041
  2. CALCIUM LEVOFOLINATE [Concomitant]
     Active Substance: LEVOLEUCOVORIN CALCIUM
     Indication: RECTAL CANCER
     Dosage: DOSAGE IS UNCERTAIN.
     Route: 041
  3. FLUOROURACIL. [Concomitant]
     Active Substance: FLUOROURACIL
     Indication: RECTAL CANCER
     Dosage: DOSAGE IS UNCERTAIN.
     Route: 040
  4. FLUOROURACIL. [Concomitant]
     Active Substance: FLUOROURACIL
     Dosage: DOSAGE IS UNCERTAIN.
     Route: 041
  5. AVASTIN [Suspect]
     Active Substance: BEVACIZUMAB
     Indication: RECTAL CANCER
     Dosage: DOSAGE IS UNCERTAIN.
     Route: 041

REACTIONS (2)
  - Heparin-induced thrombocytopenia [Not Recovered/Not Resolved]
  - Superior vena cava syndrome [Not Recovered/Not Resolved]

NARRATIVE: CASE EVENT DATE: 20181118
